FAERS Safety Report 5492831-4 (Version None)
Quarter: 2007Q4

REPORT INFORMATION
  Report Type: 
  Country: None (occurrence: None)
  Receive Date: 20071023
  Receipt Date: 20071018
  Transmission Date: 20080405
  Serious: Yes (Hospitalization)
  Sender: FDA-Public Use
  Company Number: JP-SP-2007-01673

PATIENT
  Age: 76 Year
  Sex: Male

DRUGS (2)
  1. IMMUCYST [Suspect]
     Indication: BLADDER CANCER
     Route: 043
     Dates: start: 20061104, end: 20061125
  2. IMMUNOBLADDER (TOKYOSTRAINS:80MG) [Suspect]
     Route: 065
     Dates: start: 20061125, end: 20061228

REACTIONS (2)
  - CUTANEOUS TUBERCULOSIS [None]
  - ERYTHEMA [None]
